FAERS Safety Report 4372615-0 (Version None)
Quarter: 2004Q2

REPORT INFORMATION
  Report Type: 
  Country: None (occurrence: None)
  Receive Date: 20040526
  Receipt Date: 20040514
  Transmission Date: 20050107
  Serious: No
  Sender: FDA-Public Use
  Company Number: 04P-056-0260964-00

PATIENT
  Sex: Female

DRUGS (1)
  1. TRICOR [Suspect]
     Dosage: ORAL
     Route: 048

REACTIONS (1)
  - BLADDER CANCER [None]
